APPROVED DRUG PRODUCT: TESTODERM
Active Ingredient: TESTOSTERONE
Strength: 6MG/24HR
Dosage Form/Route: FILM, EXTENDED RELEASE;TRANSDERMAL
Application: N019762 | Product #002
Applicant: ALZA CORP
Approved: Oct 12, 1993 | RLD: No | RS: No | Type: DISCN